FAERS Safety Report 6682034-X (Version None)
Quarter: 2010Q2

REPORT INFORMATION
  Report Type: 
  Country: None (occurrence: None)
  Receive Date: 20100414
  Receipt Date: 20100414
  Transmission Date: 20101027
  Serious: Yes (Hospitalization, Disabling)
  Sender: FDA-Public Use
  Company Number: None

PATIENT
  Age: 56 Year
  Sex: Female
  Weight: 63.5036 kg

DRUGS (2)
  1. PEG-INTRON [Suspect]
     Indication: HEPATITIS C
     Dosage: SHOT WEEKLY SQ
     Route: 058
     Dates: start: 20091003, end: 20091121
  2. RIBIVARIN 5 PILLS A DAY [Suspect]
     Indication: HEPATITIS C
     Dosage: DAILY 5 PILLS PO
     Route: 048
     Dates: start: 20091003, end: 20091121

REACTIONS (6)
  - ANAEMIA [None]
  - GASTROINTESTINAL DISORDER [None]
  - LARGE INTESTINAL HAEMORRHAGE [None]
  - NAUSEA [None]
  - PYREXIA [None]
  - SKIN PAPILLOMA [None]
